FAERS Safety Report 8191254 (Version 4)
Quarter: 2013Q3

REPORT INFORMATION
  Report Type: Spontaneous
  Country: US (occurrence: US)
  Receive Date: 20111020
  Receipt Date: 20130910
  Transmission Date: 20140515
  Serious: Yes (Hospitalization, Other)
  Sender: FDA-Public Use
  Company Number: US-ROCHE-1005012

PATIENT
  Age: 20 Year
  Sex: Male
  Weight: 63.56 kg

DRUGS (2)
  1. ACCUTANE [Suspect]
     Indication: ACNE
     Route: 065
     Dates: start: 1986, end: 1987
  2. ACCUTANE [Suspect]
     Route: 065
     Dates: start: 1988, end: 1994

REACTIONS (12)
  - Crohn^s disease [Unknown]
  - Colitis ulcerative [Unknown]
  - Inflammatory bowel disease [Unknown]
  - Intestinal obstruction [Unknown]
  - Irritable bowel syndrome [Unknown]
  - Obsessive-compulsive disorder [Unknown]
  - Attention deficit/hyperactivity disorder [Unknown]
  - Depression [Unknown]
  - Bipolar disorder [Unknown]
  - Injury [Unknown]
  - Blood triglycerides increased [Unknown]
  - Acne [Unknown]
